FAERS Safety Report 25717861 (Version 1)
Quarter: 2025Q3

REPORT INFORMATION
  Report Type: Spontaneous
  Country: US (occurrence: US)
  Receive Date: 20250822
  Receipt Date: 20250822
  Transmission Date: 20251021
  Serious: Yes (Death, Other)
  Sender: AMGEN
  Company Number: US-AMGEN-USASP2025162317

PATIENT

DRUGS (1)
  1. PREDNISONE [Suspect]
     Active Substance: PREDNISONE
     Indication: End stage renal disease
     Route: 065

REACTIONS (4)
  - Head injury [Fatal]
  - Delayed graft function [Unknown]
  - Kidney transplant rejection [Unknown]
  - Graft loss [Unknown]
